FAERS Safety Report 9544198 (Version 1)
Quarter: 2013Q3

REPORT INFORMATION
  Report Type: Spontaneous
  Country: US (occurrence: US)
  Receive Date: 20130923
  Receipt Date: 20130923
  Transmission Date: 20140515
  Serious: No
  Sender: FDA-Public Use
  Company Number: US-ASTRAZENECA-2013SE67396

PATIENT
  Age: 90 Year
  Sex: Male
  Weight: 96.2 kg

DRUGS (8)
  1. LISINOPRIL [Suspect]
     Indication: HYPERTENSION
     Route: 048
     Dates: end: 201304
  2. LISINOPRIL [Suspect]
     Indication: HYPERTENSION
     Route: 048
     Dates: start: 201304
  3. METOPROLOL SUCCINATE(NON AZ PRODUCT) [Suspect]
     Indication: HYPERTENSION
     Dosage: METOPROLOL SUCCINATE UNKNOWN
     Route: 048
     Dates: start: 200704
  4. METOPROLOL SUCCINATE(NON AZ PRODUCT) [Suspect]
     Indication: HYPERTENSION
     Dosage: METOPROLOL SUCCINATE WOCKARDT
     Route: 048
     Dates: start: 201304
  5. ALPRAZOLAM [Concomitant]
     Indication: ANXIETY
     Dosage: 0.5 TID
     Route: 048
  6. ALLOPRUINOL [Concomitant]
     Indication: GOUT
     Route: 048
     Dates: start: 1995
  7. LEVOTHYROXINE [Concomitant]
     Indication: HYPOTHYROIDISM
     Dosage: 0.88 MCG DAILY
     Route: 048
  8. AMITRIPTYLINE [Concomitant]
     Indication: ANTIDEPRESSANT THERAPY
     Route: 048

REACTIONS (2)
  - Hypertension [Unknown]
  - Drug effect decreased [Unknown]
